FAERS Safety Report 10697517 (Version 1)
Quarter: 2015Q1

REPORT INFORMATION
  Report Type: Spontaneous
  Country: US (occurrence: US)
  Receive Date: 20150108
  Receipt Date: 20150108
  Transmission Date: 20150721
  Serious: Yes (Other)
  Sender: FDA-Public Use
  Company Number: US-SA-2015SA000470

PATIENT

DRUGS (3)
  1. ALLEGRA [Suspect]
     Active Substance: FEXOFENADINE HYDROCHLORIDE
     Route: 048
  2. NASONEX [Suspect]
     Active Substance: MOMETASONE FUROATE
     Route: 065
  3. AYR SALINE NASAL DROPS [Suspect]
     Active Substance: SODIUM CHLORIDE
     Route: 065

REACTIONS (3)
  - Drug dependence [Unknown]
  - Seizure [Unknown]
  - Drug ineffective [Unknown]
